FAERS Safety Report 6438482-6 (Version None)
Quarter: 2009Q4

REPORT INFORMATION
  Report Type: 
  Country: None (occurrence: None)
  Receive Date: 20091112
  Receipt Date: 20091101
  Transmission Date: 20100525
  Serious: Yes (Other)
  Sender: FDA-Public Use
  Company Number: US-GENENTECH-293440

PATIENT

DRUGS (7)
  1. BEVACIZUMAB [Suspect]
     Indication: BREAST CANCER
     Dosage: 10 MG/KG OVER 30-90 MIN, Q14D FOR CYCLES 1-4
     Route: 042
     Dates: start: 20090812
  2. BEVACIZUMAB [Suspect]
     Dosage: 15 MG/KG OVER 30-90 MIN, Q21D FOR CYCLES 5-8
     Route: 042
  3. DOXORUBICIN HCL [Suspect]
     Indication: BREAST CANCER
     Dosage: 60 MG/M2, Q14D FOR CYCLES 1-4
     Dates: start: 20090812
  4. CYCLOPHOSPHAMIDE [Suspect]
     Indication: BREAST CANCER
     Dosage: 600 MG/M2 OVER 20-30 MIN, Q14D FOR CYCLES 1-4
     Route: 042
     Dates: start: 20090812
  5. FILGRASTIM [Suspect]
     Indication: BREAST CANCER
     Dosage: 5 A?G/KG, DAYS 2-11 / Q14D FOR CYCLES 1-4
     Route: 058
     Dates: start: 20090812
  6. PEGFILGRASTIM [Suspect]
     Indication: BREAST CANCER
     Dosage: 6 MG, DAY 2 / Q14D FOR CYCLES 1-4
     Route: 058
     Dates: start: 20090812
  7. PACLITAXEL [Suspect]
     Indication: BREAST CANCER
     Dosage: 80 MG/M2 OVER 1 HR, 1/WEEK FOR CYCLES 5-8
     Route: 042

REACTIONS (1)
  - CHILLS [None]
